FAERS Safety Report 6737359-6 (Version None)
Quarter: 2010Q2

REPORT INFORMATION
  Report Type: 
  Country: None (occurrence: None)
  Receive Date: 20100524
  Receipt Date: 20100514
  Transmission Date: 20101027
  Serious: Yes (Hospitalization)
  Sender: FDA-Public Use
  Company Number: US-JNJFOC-20100503353

PATIENT
  Sex: Female

DRUGS (2)
  1. TYLENOL INFANT UNSPECIFIED [Suspect]
     Indication: TEETHING
     Route: 048
     Dates: start: 20100417, end: 20100418
  2. TYLENOL INFANT UNSPECIFIED [Suspect]
     Indication: NASOPHARYNGITIS
     Route: 048
     Dates: start: 20100417, end: 20100418

REACTIONS (2)
  - PRODUCT QUALITY ISSUE [None]
  - VOMITING [None]
